FAERS Safety Report 6061935-X (Version None)
Quarter: 2009Q1

REPORT INFORMATION
  Report Type: 
  Country: None (occurrence: None)
  Receive Date: 20090202
  Receipt Date: 20090129
  Transmission Date: 20090719
  Serious: Yes (Death)
  Sender: FDA-Public Use
  Company Number: PHHY2008GB26131

PATIENT
  Sex: Male

DRUGS (5)
  1. ZOMETA [Suspect]
     Indication: METASTASES TO BONE
     Dosage: 2 MG, UNK
     Route: 042
     Dates: start: 20081015
  2. ZOLADEX [Concomitant]
     Indication: PROSTATE CANCER
     Route: 058
  3. ASPIRIN [Concomitant]
     Indication: MYOCARDIAL ISCHAEMIA
     Dosage: 75 MG, UNK
     Route: 048
  4. ATORVASTATIN [Concomitant]
     Indication: MYOCARDIAL ISCHAEMIA
     Route: 048
  5. NICOTINE [Concomitant]

REACTIONS (1)
  - MYOCARDIAL ISCHAEMIA [None]
